FAERS Safety Report 25457755 (Version 1)
Quarter: 2025Q2

REPORT INFORMATION
  Report Type: Report from Study
  Country: US (occurrence: US)
  Receive Date: 20250619
  Receipt Date: 20250619
  Transmission Date: 20250716
  Serious: No
  Sender: MALLINCKRODT
  Company Number: US-MALLINCKRODT-MNK202502194

PATIENT
  Sex: Male

DRUGS (2)
  1. CORTICOTROPIN [Suspect]
     Active Substance: CORTICOTROPIN
     Indication: Psoriatic arthropathy
  2. CORTICOTROPIN [Suspect]
     Active Substance: CORTICOTROPIN

REACTIONS (2)
  - Pain [Not Recovered/Not Resolved]
  - Arthritis [Unknown]
